FAERS Safety Report 14208503 (Version 3)
Quarter: 2018Q2

REPORT INFORMATION
  Report Type: Report from Study
  Country: US (occurrence: US)
  Receive Date: 20171121
  Receipt Date: 20180420
  Transmission Date: 20180711
  Serious: Yes (Other)
  Sender: FDA-Public Use
  Company Number: US-TAKEDA-2017TUS023190

PATIENT
  Age: 39 Year
  Sex: Female
  Weight: 70.3 kg

DRUGS (10)
  1. URSO FORTE [Concomitant]
     Active Substance: URSODIOL
     Indication: CHOLESTASIS
     Dosage: 300 MG, BID
     Route: 048
     Dates: start: 20180201, end: 20180222
  2. VEDOLIZUMAB [Suspect]
     Active Substance: VEDOLIZUMAB
     Indication: CROHN^S DISEASE
     Dosage: 300 MG, UNK
     Route: 042
     Dates: start: 20150201, end: 20180222
  3. CALCIUM [Concomitant]
     Active Substance: CALCIUM
     Dosage: 1000 MG, QD
     Route: 048
     Dates: start: 20170721, end: 20180222
  4. CAFFEINE. [Concomitant]
     Active Substance: CAFFEINE
     Dosage: UNK UNK, 2/WEEK
     Dates: start: 20170623, end: 20180222
  5. DHA [Concomitant]
     Active Substance: DIETARY SUPPLEMENT
     Dosage: UNK UNK, QD
     Route: 048
     Dates: start: 20170721, end: 20180222
  6. TYLENOL [Concomitant]
     Active Substance: ACETAMINOPHEN
     Indication: HEADACHE
     Dosage: UNK UNK, 1/WEEK
     Route: 048
     Dates: start: 20170623, end: 20180122
  7. VITAMIN B6 [Concomitant]
     Active Substance: PYRIDOXINE HYDROCHLORIDE
     Dosage: UNK UNK, QD
     Route: 048
     Dates: start: 20170915, end: 20180222
  8. BABY ASPIRIN [Concomitant]
     Active Substance: ASPIRIN
     Indication: PRE-ECLAMPSIA
     Dosage: 81 MG, QD
     Route: 048
     Dates: start: 20170721, end: 20180222
  9. PEPCID [Concomitant]
     Active Substance: FAMOTIDINE
     Indication: DYSPEPSIA
     Dosage: UNK UNK, 2/WEEK
     Route: 048
     Dates: start: 20171215, end: 20180122
  10. BENADRYL [Concomitant]
     Active Substance: DIPHENHYDRAMINE HYDROCHLORIDE
     Indication: SLEEP DISORDER
     Dosage: UNK UNK, QD
     Route: 048
     Dates: start: 20170623, end: 20180222

REACTIONS (2)
  - Pregnancy [Recovered/Resolved]
  - Cellulitis [Unknown]

NARRATIVE: CASE EVENT DATE: 20180227
